FAERS Safety Report 12432345 (Version 2)
Quarter: 2019Q1

REPORT INFORMATION
  Report Type: Spontaneous
  Country: US (occurrence: US)
  Receive Date: 20160603
  Receipt Date: 20190112
  Transmission Date: 20190417
  Serious: Yes (Hospitalization, Other)
  Sender: FDA-Public Use
  Company Number: US-DSJP-DSU-2015-118915

PATIENT

DRUGS (1)
  1. BENICAR [Suspect]
     Active Substance: OLMESARTAN MEDOXOMIL
     Indication: HYPERTENSION
     Dosage: 40 MG, QD
     Route: 048
     Dates: start: 20100101

REACTIONS (8)
  - Acute kidney injury [Unknown]
  - Hepatic enzyme increased [Recovered/Resolved]
  - Diverticulum intestinal [Not Recovered/Not Resolved]
  - Renal cyst [Unknown]
  - Irritable bowel syndrome [Unknown]
  - Hepatic steatosis [Not Recovered/Not Resolved]
  - Sprue-like enteropathy [Recovering/Resolving]
  - Cholelithiasis [Unknown]

NARRATIVE: CASE EVENT DATE: 20120101
